FAERS Safety Report 8453736-X (Version None)
Quarter: 2012Q2

REPORT INFORMATION
  Report Type: 
  Country: None (occurrence: None)
  Receive Date: 20120620
  Receipt Date: 20120611
  Transmission Date: 20120825
  Serious: Yes (Other)
  Sender: FDA-Public Use
  Company Number: US-ASTRAZENECA-2012SE39119

PATIENT
  Age: 72 Year
  Sex: Female

DRUGS (5)
  1. D3 [Concomitant]
  2. CALCIUM [Concomitant]
     Dosage: 1500
  3. FOSAMAX [Concomitant]
  4. VITAMIN B-12 [Concomitant]
  5. ARIMIDEX [Suspect]
     Route: 048

REACTIONS (1)
  - NEOPLASM MALIGNANT [None]
